FAERS Safety Report 6321538-6 (Version None)
Quarter: 2009Q3

REPORT INFORMATION
  Report Type: 
  Country: None (occurrence: None)
  Receive Date: 20090824
  Receipt Date: 20090810
  Transmission Date: 20100115
  Serious: Yes (Hospitalization)
  Sender: FDA-Public Use
  Company Number: US-RANBAXY-2009US-26359

PATIENT

DRUGS (7)
  1. ISOPTIN SR [Suspect]
     Indication: HYPERTENSION
     Dosage: 240 MG, BID
     Route: 048
  2. HYPERIUM [Suspect]
     Indication: HYPERTENSION
     Dosage: 1 MG, BID
     Route: 048
  3. COAPROVEL [Suspect]
     Indication: HYPERTENSION
     Dosage: 300MG/12.5 MG QD
     Route: 048
  4. COVERSYL [Suspect]
     Indication: HYPERTENSION
     Dosage: 4 MG QD
     Route: 048
  5. SERETIDE [Suspect]
     Indication: ASTHMA
     Dosage: 250/25 MCG BID
     Route: 045
  6. LAMALINE [Concomitant]
     Indication: DRUG USE FOR UNKNOWN INDICATION
     Route: 065
  7. DIANTLAVIC [Concomitant]
     Indication: DRUG USE FOR UNKNOWN INDICATION
     Route: 065

REACTIONS (2)
  - HEADACHE [None]
  - PHOTOPHOBIA [None]
